FAERS Safety Report 25849427 (Version 2)
Quarter: 2025Q4

REPORT INFORMATION
  Report Type: Report from Study
  Country: EU (occurrence: EU)
  Receive Date: 20250925
  Receipt Date: 20251109
  Transmission Date: 20260117
  Serious: Yes (Hospitalization, Other)
  Sender: ABBVIE
  Company Number: EU-ABBVIE-6475887

PATIENT
  Age: 79 Year
  Sex: Female

DRUGS (2)
  1. FOSCARBIDOPA\FOSLEVODOPA [Suspect]
     Active Substance: FOSCARBIDOPA\FOSLEVODOPA
     Indication: Product used for unknown indication
     Dosage: LAST ADMIN DATE: 2025.
     Route: 058
     Dates: start: 20250507
  2. FOSCARBIDOPA\FOSLEVODOPA [Suspect]
     Active Substance: FOSCARBIDOPA\FOSLEVODOPA
     Dosage: BASE FLOW RATE: 0.44 ML/H, HIGH FLOW RATE: 0.48 ML/H. FIRST ADMIN DATE: 2025.
     Route: 058

REACTIONS (4)
  - Fall [Unknown]
  - Fall [Recovered/Resolved]
  - Femoral neck fracture [Unknown]
  - Cognitive disorder [Not Recovered/Not Resolved]

NARRATIVE: CASE EVENT DATE: 20250101
